FAERS Safety Report 6118714-4 (Version None)
Quarter: 2009Q1

REPORT INFORMATION
  Report Type: 
  Country: None (occurrence: None)
  Receive Date: 20090314
  Receipt Date: 20090225
  Transmission Date: 20090719
  Serious: No
  Sender: FDA-Public Use
  Company Number: US-ABBOTT-09P-163-0559550-00

PATIENT
  Sex: Female
  Weight: 81.72 kg

DRUGS (1)
  1. HUMIRA [Suspect]
     Indication: REITER'S SYNDROME
     Route: 058
     Dates: start: 20070101

REACTIONS (4)
  - GAIT DISTURBANCE [None]
  - INJECTION SITE PAIN [None]
  - INSOMNIA [None]
  - PAIN [None]
